FAERS Safety Report 6440697-8 (Version None)
Quarter: 2009Q4

REPORT INFORMATION
  Report Type: 
  Country: None (occurrence: None)
  Receive Date: 20091116
  Receipt Date: 20091105
  Transmission Date: 20100525
  Serious: Yes (Hospitalization)
  Sender: FDA-Public Use
  Company Number: US-BIOGENIDEC-2009BI022344

PATIENT
  Age: 60 Year
  Sex: Female

DRUGS (3)
  1. AVONEX [Suspect]
     Indication: MULTIPLE SCLEROSIS
     Route: 030
     Dates: end: 20090601
  2. AVONEX [Suspect]
     Route: 030
     Dates: start: 19980701
  3. AVONEX [Suspect]
     Route: 030

REACTIONS (3)
  - MOBILITY DECREASED [None]
  - OEDEMA [None]
  - URINARY TRACT INFECTION [None]
